FAERS Safety Report 7372223-3 (Version None)
Quarter: 2011Q1

REPORT INFORMATION
  Report Type: 
  Country: None (occurrence: None)
  Receive Date: 20110324
  Receipt Date: 20110315
  Transmission Date: 20110831
  Serious: Yes (Hospitalization)
  Sender: FDA-Public Use
  Company Number: NL-ASTRAZENECA-2011SE14649

PATIENT
  Age: 68 Year
  Sex: Male
  Weight: 88 kg

DRUGS (2)
  1. SIMVASTATIN [Suspect]
     Route: 048
     Dates: start: 19860601, end: 20080603
  2. LISINOPRIL [Suspect]
     Route: 048
     Dates: start: 20050603

REACTIONS (7)
  - ARTHRALGIA [None]
  - MYALGIA [None]
  - MUSCLE SPASMS [None]
  - ECZEMA [None]
  - DIZZINESS [None]
  - FATIGUE [None]
  - HEADACHE [None]
